FAERS Safety Report 7356648-8 (Version None)
Quarter: 2011Q1

REPORT INFORMATION
  Report Type: 
  Country: None (occurrence: None)
  Receive Date: 20110316
  Receipt Date: 20110307
  Transmission Date: 20110831
  Serious: Yes (Hospitalization)
  Sender: FDA-Public Use
  Company Number: PHHO2011US01265

PATIENT

DRUGS (2)
  1. AFINITOR [Suspect]
     Indication: LYMPHOMA
     Dosage: UNK
     Route: 048
     Dates: start: 20101228, end: 20110109
  2. LBH589 [Suspect]
     Indication: LYMPHOMA
     Dosage: UNK
     Dates: start: 20101228, end: 20110108

REACTIONS (1)
  - ATRIAL FIBRILLATION [None]
